FAERS Safety Report 6033102-7 (Version None)
Quarter: 2009Q1

REPORT INFORMATION
  Report Type: 
  Country: None (occurrence: None)
  Receive Date: 20090105
  Receipt Date: 20071217
  Transmission Date: 20090719
  Serious: Yes (Hospitalization)
  Sender: FDA-Public Use
  Company Number: US-000019

PATIENT
  Sex: Female

DRUGS (3)
  1. MULTIHANCE [Suspect]
     Indication: ANGIOGRAM
     Dosage: 30ML ONCE INTRAVENOUS (NOT OTHERWISE SPECIFIED), 30ML ONCE INTRAVENOUS (NOT OTHERWISE SPECIFIED)
     Route: 042
     Dates: start: 20071217, end: 20071217
  2. MULTIHANCE [Suspect]
     Indication: ANGIOGRAM
     Dosage: 30ML ONCE INTRAVENOUS (NOT OTHERWISE SPECIFIED), 30ML ONCE INTRAVENOUS (NOT OTHERWISE SPECIFIED)
     Route: 042
     Dates: start: 20071217, end: 20071217
  3. MULTIHANCE [Suspect]

REACTIONS (2)
  - THROAT TIGHTNESS [None]
  - URTICARIA [None]
